FAERS Safety Report 12176812 (Version 1)
Quarter: 2016Q1

REPORT INFORMATION
  Report Type: Spontaneous
  Country: US (occurrence: US)
  Receive Date: 20160314
  Receipt Date: 20160314
  Transmission Date: 20160526
  Serious: No
  Sender: FDA-Public Use
  Company Number: US-AKORN PHARMACEUTICALS-2015AKN00298

PATIENT
  Sex: Female

DRUGS (4)
  1. FLUOXETINE [Concomitant]
     Active Substance: FLUOXETINE HYDROCHLORIDE
  2. BIAFINE [Concomitant]
     Active Substance: TROLAMINE
     Route: 061
  3. MYORISAN [Suspect]
     Active Substance: ISOTRETINOIN
     Indication: DERMATILLOMANIA
     Dosage: 20 MG, 1X/DAY
     Route: 048
     Dates: start: 20150113, end: 20150518
  4. MULTIVITAMIN [Concomitant]
     Active Substance: VITAMINS

REACTIONS (6)
  - Dry skin [Unknown]
  - Drug ineffective [Not Recovered/Not Resolved]
  - Lichenification [Unknown]
  - Skin exfoliation [Unknown]
  - Excoriation [Recovered/Resolved]
  - Impaired healing [Unknown]

NARRATIVE: CASE EVENT DATE: 2015
